FAERS Safety Report 9061858 (Version 1)
Quarter: 2013Q1

REPORT INFORMATION
  Report Type: Spontaneous
  Country: US (occurrence: None)
  Receive Date: 20130122
  Receipt Date: 20130122
  Transmission Date: 20140127
  Serious: Yes (Death)
  Sender: FDA-Public Use
  Company Number: 2013POI058000038

PATIENT
  Age: 50 Year
  Sex: Female

DRUGS (2)
  1. OXYCODONE HCL [Suspect]
     Route: 048
     Dates: end: 2011
  2. BENZODIAZEPINE [Suspect]
     Route: 048
     Dates: end: 2011

REACTIONS (1)
  - Completed suicide [None]
